FAERS Safety Report 25323195 (Version 2)
Quarter: 2025Q2

REPORT INFORMATION
  Report Type: Spontaneous
  Country: FR (occurrence: FR)
  Receive Date: 20250516
  Receipt Date: 20250517
  Transmission Date: 20250717
  Serious: Yes (Other)
  Sender: PIERRE FABRE MEDICAMENT
  Company Number: None

PATIENT
  Age: 8 Month
  Sex: Female
  Weight: 10.4 kg

DRUGS (5)
  1. PROPRANOLOL HYDROCHLORIDE [Suspect]
     Active Substance: PROPRANOLOL HYDROCHLORIDE
     Indication: Haemangioma
     Dosage: 0.5 MG/KG, BID (2/DAY) (3 MG 2X/D)
     Dates: start: 20240404, end: 20240411
  2. PROPRANOLOL HYDROCHLORIDE [Suspect]
     Active Substance: PROPRANOLOL HYDROCHLORIDE
     Dosage: 1 MG/KG, BID (2/DAY) (6 MG 2X/D)
     Dates: start: 20240412, end: 20240415
  3. PROPRANOLOL HYDROCHLORIDE [Suspect]
     Active Substance: PROPRANOLOL HYDROCHLORIDE
     Dosage: 1.5 MG/KG, BID (2/DAY) (9 MG 2X/D)
     Dates: start: 20240416, end: 20240702
  4. PROPRANOLOL HYDROCHLORIDE [Suspect]
     Active Substance: PROPRANOLOL HYDROCHLORIDE
     Dosage: 1.5 MG/KG, BID (2/DAY) (11.5 MG 2X/D)
     Dates: start: 20240703, end: 202409
  5. PROPRANOLOL HYDROCHLORIDE [Suspect]
     Active Substance: PROPRANOLOL HYDROCHLORIDE
     Dosage: 1.5 MG/KG, BID (2/DAY) (13.7 MG 2X/D)
     Dates: start: 20241029, end: 2024

REACTIONS (4)
  - Reaction to excipient [Recovered/Resolved]
  - Vomiting [Recovered/Resolved]
  - Drug titration error [Unknown]
  - Off label use [Unknown]

NARRATIVE: CASE EVENT DATE: 20240416
